FAERS Safety Report 6153492-4 (Version None)
Quarter: 2009Q2

REPORT INFORMATION
  Report Type: 
  Country: None (occurrence: None)
  Receive Date: 20090413
  Receipt Date: 20090210
  Transmission Date: 20091009
  Serious: No
  Sender: FDA-Public Use
  Company Number: US-ABBOTT-09P-163-0502843-00

PATIENT
  Sex: Female
  Weight: 49.94 kg

DRUGS (1)
  1. LUPRON [Suspect]
     Indication: IN VITRO FERTILISATION
     Route: 030
     Dates: start: 20090129

REACTIONS (3)
  - ABDOMINAL PAIN [None]
  - OVARIAN CYST [None]
  - UTERINE LEIOMYOMA [None]
